FAERS Safety Report 9745781 (Version 1)
Quarter: 2013Q4

REPORT INFORMATION
  Report Type: Spontaneous
  Country: RO (occurrence: RO)
  Receive Date: 20131211
  Receipt Date: 20131211
  Transmission Date: 20140711
  Serious: Yes (Life-Threatening, Hospitalization)
  Sender: FDA-Public Use
  Company Number: RO-ABBOTT-13X-135-1158963-00

PATIENT
  Age: 13 Year
  Sex: Female

DRUGS (1)
  1. PROPAFENONE [Suspect]
     Indication: PRODUCT USED FOR UNKNOWN INDICATION
     Dosage: 13 TABLETS OF 150MG: 1950 MG TAKEN ONCE
     Route: 048

REACTIONS (26)
  - Coma [Recovered/Resolved]
  - Grand mal convulsion [Recovered/Resolved]
  - Intentional drug misuse [Unknown]
  - Suicide attempt [Unknown]
  - Somnolence [Recovered/Resolved]
  - Arrhythmia [Recovered/Resolved]
  - Hypotension [Recovered/Resolved]
  - Nodal rhythm [Recovered/Resolved]
  - Electrocardiogram QRS complex prolonged [Recovered/Resolved]
  - Atrioventricular block first degree [Recovered/Resolved]
  - Electrocardiogram QT prolonged [Recovered/Resolved]
  - Depressed level of consciousness [Recovered/Resolved]
  - Respiratory rate decreased [Recovered/Resolved]
  - Loss of consciousness [Recovered/Resolved]
  - Hypotonia [Recovered/Resolved]
  - Mydriasis [Recovered/Resolved]
  - Cyanosis [Recovered/Resolved]
  - Respiratory rate decreased [Recovered/Resolved]
  - Pupillary light reflex tests abnormal [Recovered/Resolved]
  - Hypotension [Recovered/Resolved]
  - Nodal arrhythmia [Recovered/Resolved]
  - Electrocardiogram QRS complex prolonged [Recovered/Resolved]
  - Metabolic acidosis [Recovered/Resolved]
  - Oxygen saturation decreased [Recovered/Resolved]
  - Body temperature decreased [Recovered/Resolved]
  - Electrocardiogram QT prolonged [Recovered/Resolved]
